FAERS Safety Report 16004362 (Version 1)
Quarter: 2019Q1

REPORT INFORMATION
  Report Type: Spontaneous
  Country: US (occurrence: US)
  Receive Date: 20190225
  Receipt Date: 20190225
  Transmission Date: 20190418
  Serious: Yes (Death)
  Sender: FDA-Public Use
  Company Number: None

PATIENT
  Sex: Male

DRUGS (8)
  1. ALPRAZOLAM. [Concomitant]
     Active Substance: ALPRAZOLAM
  2. PREDNISONE. [Concomitant]
     Active Substance: PREDNISONE
  3. MIRTAZAPINE. [Concomitant]
     Active Substance: MIRTAZAPINE
  4. ONDANSETRON [Concomitant]
     Active Substance: ONDANSETRON
  5. ELIQUIS [Concomitant]
     Active Substance: APIXABAN
  6. ESCITALOPRAM [Concomitant]
     Active Substance: ESCITALOPRAM OXALATE
  7. FINASTERIDE. [Concomitant]
     Active Substance: FINASTERIDE
  8. SUTENT [Suspect]
     Active Substance: SUNITINIB MALATE
     Indication: RENAL CANCER
     Dosage: ?          OTHER FREQUENCY:QD 14/21 DAYS;?
     Route: 048
     Dates: start: 20181227

REACTIONS (1)
  - Death [None]
